FAERS Safety Report 13887227 (Version 2)
Quarter: 2017Q4

REPORT INFORMATION
  Report Type: Spontaneous
  Country: US (occurrence: US)
  Receive Date: 20170821
  Receipt Date: 20171010
  Transmission Date: 20180320
  Serious: Yes (Other)
  Sender: FDA-Public Use
  Company Number: US-TEVA-798061ACC

PATIENT
  Sex: Female

DRUGS (1)
  1. PARAGARD T 380A [Suspect]
     Active Substance: COPPER
     Indication: CONTRACEPTION
     Dosage: NINE YEARS AGO
     Dates: end: 20170718

REACTIONS (3)
  - Pregnancy on contraceptive [Unknown]
  - Ectopic pregnancy [Recovered/Resolved]
  - Maternal exposure during pregnancy [Unknown]
